FAERS Safety Report 11882842 (Version 1)
Quarter: 2015Q4

REPORT INFORMATION
  Report Type: Spontaneous
  Country: US (occurrence: US)
  Receive Date: 20151231
  Receipt Date: 20151231
  Transmission Date: 20160305
  Serious: Yes (Other)
  Sender: FDA-Public Use
  Company Number: US-BAYER-2015-495725

PATIENT
  Age: 55 Year
  Sex: Male
  Weight: 73.92 kg

DRUGS (1)
  1. BAYER ADVANCED ASPIRIN EXTRA STRENGTH [Suspect]
     Active Substance: ASPIRIN
     Dosage: 1 DF, PRN
     Route: 048

REACTIONS (8)
  - Abdominal discomfort [None]
  - Intentional product use issue [None]
  - Product solubility abnormal [None]
  - Pain [Not Recovered/Not Resolved]
  - Haematochezia [None]
  - Product coating issue [None]
  - Dysphagia [None]
  - Poor quality sleep [Recovered/Resolved]

NARRATIVE: CASE EVENT DATE: 20151219
